FAERS Safety Report 7991811-4 (Version None)
Quarter: 2011Q4

REPORT INFORMATION
  Report Type: 
  Country: None (occurrence: None)
  Receive Date: 20111219
  Receipt Date: 20111205
  Transmission Date: 20120403
  Serious: Yes (Other)
  Sender: FDA-Public Use
  Company Number: PHHY2011EG106581

PATIENT
  Age: 5 Year
  Sex: Male
  Weight: 22 kg

DRUGS (3)
  1. ZADITEN [Suspect]
     Indication: UPPER RESPIRATORY TRACT INFECTION
     Dosage: UNK
  2. ZYRTEC [Suspect]
     Indication: UPPER RESPIRATORY TRACT INFECTION
     Dosage: UNK
  3. CATAFLY [Suspect]
     Indication: UPPER RESPIRATORY TRACT INFECTION
     Dosage: 5 ML, DAILY
     Route: 048
     Dates: start: 20111130, end: 20111204

REACTIONS (1)
  - HAEMATURIA [None]
